FAERS Safety Report 6566902-5 (Version None)
Quarter: 2010Q1

REPORT INFORMATION
  Report Type: 
  Country: None (occurrence: None)
  Receive Date: 20100128
  Receipt Date: 20100113
  Transmission Date: 20100710
  Serious: Yes (Other)
  Sender: FDA-Public Use
  Company Number: 2010000225

PATIENT
  Age: 68 Year
  Sex: Female
  Weight: 62.5964 kg

DRUGS (4)
  1. TARCEVA [Suspect]
     Indication: NON-SMALL CELL LUNG CANCER
     Dosage: (150 MG, QD), ORAL; (100 MG, QD), ORAL
     Route: 048
     Dates: start: 20080101, end: 20080301
  2. TARCEVA [Suspect]
     Indication: NON-SMALL CELL LUNG CANCER
     Dosage: (150 MG, QD), ORAL; (100 MG, QD), ORAL
     Route: 048
     Dates: start: 20080301
  3. COZAAR [Concomitant]
  4. MULTI-VITAMINS [Concomitant]

REACTIONS (2)
  - PERICARDIAL EFFUSION [None]
  - RASH [None]
